FAERS Safety Report 16993991 (Version 2)
Quarter: 2019Q4

REPORT INFORMATION
  Report Type: Report from Study
  Country: CA (occurrence: CA)
  Receive Date: 20191105
  Receipt Date: 20191127
  Transmission Date: 20200122
  Serious: Yes (Hospitalization)
  Sender: FDA-Public Use
  Company Number: NVSC2019CA023435

PATIENT
  Sex: Female

DRUGS (1)
  1. KISQALI [Suspect]
     Active Substance: RIBOCICLIB
     Indication: BREAST CANCER METASTATIC
     Dosage: 400 MG, QD
     Route: 048
     Dates: start: 20190927, end: 201910

REACTIONS (1)
  - Cerebrovascular accident [Not Recovered/Not Resolved]
